FAERS Safety Report 14986255 (Version 3)
Quarter: 2018Q3

REPORT INFORMATION
  Report Type: Report from Study
  Country: CA (occurrence: CA)
  Receive Date: 20180607
  Receipt Date: 20180727
  Transmission Date: 20181010
  Serious: Yes (Death, Hospitalization)
  Sender: FDA-Public Use
  Company Number: CA-ACTELION-A-US2018-173101

PATIENT
  Age: 60 Year
  Sex: Female
  Weight: 46.26 kg

DRUGS (7)
  1. LEVOTHYROXINE. [Concomitant]
     Active Substance: LEVOTHYROXINE
  2. FUROSEMIDE. [Concomitant]
     Active Substance: FUROSEMIDE
  3. TRACLEER [Suspect]
     Active Substance: BOSENTAN
     Indication: PULMONARY ARTERIAL HYPERTENSION
     Dosage: 62.5 MG, UNK
     Route: 048
     Dates: start: 20180514
  4. TRACLEER [Suspect]
     Active Substance: BOSENTAN
     Dosage: 125 MG, UNK
     Route: 048
  5. TYLENOL [Concomitant]
     Active Substance: ACETAMINOPHEN
     Dosage: UNK, TID
  6. URSODIOL. [Concomitant]
     Active Substance: URSODIOL
  7. PANTOPRAZOLE [Concomitant]
     Active Substance: PANTOPRAZOLE

REACTIONS (5)
  - Liver disorder [Unknown]
  - Pulmonary hypertension [Unknown]
  - Blood glucose abnormal [Unknown]
  - Death [Fatal]
  - Localised infection [Not Recovered/Not Resolved]

NARRATIVE: CASE EVENT DATE: 20180718
